FAERS Safety Report 4416135-3 (Version None)
Quarter: 2004Q3

REPORT INFORMATION
  Report Type: 
  Country: None (occurrence: None)
  Receive Date: 20040804
  Receipt Date: 20040804
  Transmission Date: 20050211
  Serious: No
  Sender: FDA-Public Use
  Company Number: None

PATIENT
  Age: 78 Year
  Sex: Male

DRUGS (1)
  1. DILAUDID [Suspect]
     Dosage: 1 MG IV  5/17 @ 1200 AND 2200
     Route: 042
     Dates: start: 20040628

REACTIONS (4)
  - BACK PAIN [None]
  - DEPRESSED LEVEL OF CONSCIOUSNESS [None]
  - RESPIRATORY DISTRESS [None]
  - TREATMENT NONCOMPLIANCE [None]
